FAERS Safety Report 8353547-X (Version None)
Quarter: 2012Q2

REPORT INFORMATION
  Report Type: 
  Country: None (occurrence: None)
  Receive Date: 20120511
  Receipt Date: 20110525
  Transmission Date: 20120825
  Serious: No
  Sender: FDA-Public Use
  Company Number: US-GLAXOSMITHKLINE-A0929916A

PATIENT
  Sex: Female
  Weight: 49 kg

DRUGS (3)
  1. HERCEPTIN [Concomitant]
  2. TYKERB [Suspect]
     Indication: PRODUCT USED FOR UNKNOWN INDICATION
     Dosage: 1000MG PER DAY
     Route: 048
  3. FOSAMAX [Concomitant]

REACTIONS (4)
  - ONYCHOLYSIS [None]
  - MYALGIA [None]
  - OEDEMA PERIPHERAL [None]
  - ONYCHALGIA [None]
